FAERS Safety Report 9843613 (Version 1)
Quarter: 2013Q4

REPORT INFORMATION
  Report Type: Spontaneous
  Country: US (occurrence: None)
  Receive Date: 20131223
  Receipt Date: 20131223
  Transmission Date: 20140711
  Serious: No
  Sender: FDA-Public Use
  Company Number: 222058LEO

PATIENT
  Age: 73 Year
  Sex: Male

DRUGS (3)
  1. PICATO GEL [Suspect]
     Indication: PHOTOSENSITIVITY REACTION
     Route: 061
     Dates: start: 20130515, end: 20130517
  2. SYNTHROID (LEVOTHYROXINE SODIUM) [Concomitant]
  3. ATORVASTATIN (ATORVASTATIN) [Concomitant]

REACTIONS (4)
  - Application site swelling [None]
  - Application site scab [None]
  - Application site exfoliation [None]
  - Drug administered at inappropriate site [None]
